FAERS Safety Report 11198611 (Version 1)
Quarter: 2015Q2

REPORT INFORMATION
  Report Type: Spontaneous
  Country: GB (occurrence: GB)
  Receive Date: 20150618
  Receipt Date: 20150618
  Transmission Date: 20150821
  Serious: Yes (Other)
  Sender: FDA-Public Use
  Company Number: GB-UCBSA-2015005168

PATIENT

DRUGS (2)
  1. NEUPRO [Suspect]
     Active Substance: ROTIGOTINE
     Indication: PRODUCT USED FOR UNKNOWN INDICATION
     Dosage: 36 MG, UNK
     Route: 062
  2. NEUPRO [Suspect]
     Active Substance: ROTIGOTINE
     Dosage: 44 MG, UNK
     Route: 062

REACTIONS (3)
  - Overdose [Unknown]
  - Off label use [Unknown]
  - Drug dependence [Unknown]
